FAERS Safety Report 10679880 (Version 1)
Quarter: 2014Q4

REPORT INFORMATION
  Report Type: Report from Study
  Country: PL (occurrence: PL)
  Receive Date: 20141229
  Receipt Date: 20141229
  Transmission Date: 20150529
  Serious: Yes (Other)
  Sender: FDA-Public Use
  Company Number: PL-VERTEX PHARMACEUTICALS-2014-004975

PATIENT
  Age: 22 Year
  Sex: Male
  Weight: 56 kg

DRUGS (5)
  1. PEGASYS [Suspect]
     Active Substance: PEGINTERFERON ALFA-2A
     Dosage: DOSAGE FORM: UNSPECIFIED
     Route: 058
     Dates: start: 201401, end: 201412
  2. PEGASYS [Suspect]
     Active Substance: PEGINTERFERON ALFA-2A
     Indication: HEPATITIS C
     Dosage: DOSAGE FORM: UNSPECIFIED
     Route: 058
     Dates: start: 20120223
  3. COPEGUS [Suspect]
     Active Substance: RIBAVIRIN
     Indication: HEPATITIS C
     Dosage: 1000 MG, UNK
     Route: 048
     Dates: start: 20120223
  4. COPEGUS [Suspect]
     Active Substance: RIBAVIRIN
     Dosage: UNK
     Route: 048
     Dates: start: 201401, end: 201412
  5. TELAPREVIR [Suspect]
     Active Substance: TELAPREVIR
     Indication: HEPATITIS C
     Dosage: UNK
     Route: 048
     Dates: start: 201401, end: 201404

REACTIONS (10)
  - Asthenia [Unknown]
  - Infusion related reaction [Unknown]
  - Fatigue [Unknown]
  - Anaemia [Unknown]
  - Somnolence [Unknown]
  - Myalgia [Unknown]
  - Arthralgia [Unknown]
  - Frustration [Unknown]
  - Neutropenia [Unknown]
  - Thrombocytopenia [Unknown]
